FAERS Safety Report 7037569-7 (Version None)
Quarter: 2010Q4

REPORT INFORMATION
  Report Type: 
  Country: None (occurrence: None)
  Receive Date: 20101011
  Receipt Date: 20100921
  Transmission Date: 20110411
  Serious: Yes (Other)
  Sender: FDA-Public Use
  Company Number: PHHY2010BR66326

PATIENT
  Age: 78 Year
  Sex: Female

DRUGS (8)
  1. APRESOLINE [Suspect]
     Dosage: 25 MG, BID
  2. FORASEQ [Suspect]
     Dosage: ONCE A DAY
  3. MONOCORDIL [Concomitant]
     Dosage: 40 MG, QD
  4. ASPIRIN [Concomitant]
     Dosage: 100 MG, QD
  5. PURANT4 [Concomitant]
     Dosage: 50 MCG
  6. LASIX [Concomitant]
     Dosage: 40 MG, QD
  7. LASIX [Concomitant]
     Dosage: 40 MG, TID
  8. METOPROLOL SUCCINATE [Concomitant]
     Dosage: 25 MG, BID

REACTIONS (17)
  - BLOOD CREATININE INCREASED [None]
  - BLOOD TRIGLYCERIDES INCREASED [None]
  - BLOOD UREA INCREASED [None]
  - CARDIOMEGALY [None]
  - CONDITION AGGRAVATED [None]
  - CONGESTIVE CARDIOMYOPATHY [None]
  - DYSPNOEA [None]
  - HEART RATE INCREASED [None]
  - HYPERTENSION [None]
  - MYOCARDIAL INFARCTION [None]
  - OBESITY [None]
  - OEDEMA PERIPHERAL [None]
  - PULMONARY CONGESTION [None]
  - RALES [None]
  - RESPIRATORY DISORDER [None]
  - TACHYPNOEA [None]
  - WHEEZING [None]
